FAERS Safety Report 4426953-3 (Version None)
Quarter: 2004Q3

REPORT INFORMATION
  Report Type: 
  Country: None (occurrence: None)
  Receive Date: 20040811
  Receipt Date: 20040729
  Transmission Date: 20050211
  Serious: Yes (Other)
  Sender: FDA-Public Use
  Company Number: 2004226285US

PATIENT
  Sex: Female

DRUGS (4)
  1. PROVERA [Suspect]
     Indication: HORMONE REPLACEMENT THERAPY
     Dates: start: 19900101, end: 19990101
  2. PREMARIN [Suspect]
     Indication: HORMONE REPLACEMENT THERAPY
     Dates: start: 19900101, end: 19990101
  3. PREMPHASE (PREMARIN;CYCRIN 14/14) [Suspect]
     Indication: HORMONE REPLACEMENT THERAPY
     Dates: start: 19920901, end: 19991201
  4. PREMPRO [Suspect]
     Indication: HORMONE REPLACEMENT THERAPY
     Dates: start: 19991201, end: 20020516

REACTIONS (1)
  - BREAST CANCER FEMALE [None]
